FAERS Safety Report 21959588 (Version 1)
Quarter: 2023Q1

REPORT INFORMATION
  Report Type: Spontaneous
  Country: US (occurrence: US)
  Receive Date: 20230206
  Receipt Date: 20230206
  Transmission Date: 20230418
  Serious: No
  Sender: FDA-Public Use
  Company Number: US-MYLANLABS-2023M1009616

PATIENT
  Sex: Female
  Weight: 58.97 kg

DRUGS (1)
  1. AMLODIPINE [Suspect]
     Active Substance: AMLODIPINE BESYLATE
     Indication: Hypertension
     Dosage: 5 MILLIGRAM, QD (TAKE 1 TABLET BY MOUTH ONCE DAILY)
     Route: 048

REACTIONS (1)
  - Drug ineffective [Unknown]
